FAERS Safety Report 23720565 (Version 1)
Quarter: 2024Q2

REPORT INFORMATION
  Report Type: Spontaneous
  Country: US (occurrence: US)
  Receive Date: 20240408
  Receipt Date: 20240408
  Transmission Date: 20240716
  Serious: No
  Sender: FDA-Public Use
  Company Number: US-002147023-NVSC2024US073796

PATIENT
  Age: 27 Year

DRUGS (1)
  1. EXFORGE [Suspect]
     Active Substance: AMLODIPINE BESYLATE\VALSARTAN
     Indication: Hypertension
     Dosage: UNK,10-160
     Route: 065

REACTIONS (3)
  - Splenomegaly [Unknown]
  - Pain [Unknown]
  - Red blood cell count increased [Unknown]
